FAERS Safety Report 20290439 (Version 1)
Quarter: 2022Q1

REPORT INFORMATION
  Report Type: Report from Study
  Country: CN (occurrence: CN)
  Receive Date: 20220104
  Receipt Date: 20220104
  Transmission Date: 20220423
  Serious: Yes (Death, Other)
  Sender: FDA-Public Use
  Company Number: CN-Accord-248144

PATIENT
  Age: 60 Year
  Sex: Female

DRUGS (1)
  1. DECITABINE [Suspect]
     Active Substance: DECITABINE
     Indication: Myelodysplastic syndrome
     Dosage: 5-DAY REGIMEN (15 MG/ (M2.D)*5 D)
     Route: 042

REACTIONS (4)
  - Skin infection [Unknown]
  - Myelosuppression [Unknown]
  - Pneumonia [Unknown]
  - Cardiac failure [Fatal]
